FAERS Safety Report 5612677-3 (Version None)
Quarter: 2008Q1

REPORT INFORMATION
  Report Type: 
  Country: None (occurrence: None)
  Receive Date: 20080201
  Receipt Date: 20080201
  Transmission Date: 20080703
  Serious: Yes (Hospitalization)
  Sender: FDA-Public Use
  Company Number: None

PATIENT
  Sex: Female
  Weight: 80.18 kg

DRUGS (11)
  1. CISPLATIN [Suspect]
     Dosage: 100 MG
  2. DOXORUBICIN HYDROCHLORIDE [Suspect]
     Dosage: 90 MG
  3. TAXOL [Suspect]
     Dosage: 318 MG
  4. COUMADIN [Concomitant]
  5. DEXAMETHASONE TAB [Concomitant]
  6. DILAUDID [Concomitant]
  7. GABAPENTIN [Concomitant]
  8. MAG OXIDE [Concomitant]
  9. PROCHLORPERAZINE [Concomitant]
  10. ZOFRAN [Concomitant]
  11. GLYBURIDE [Concomitant]

REACTIONS (5)
  - BLOOD CREATININE INCREASED [None]
  - BLOOD UREA INCREASED [None]
  - HYPOGLYCAEMIA [None]
  - HYPOTENSION [None]
  - PELVIC FLUID COLLECTION [None]
